FAERS Safety Report 8515157 (Version 6)
Quarter: 2016Q3

REPORT INFORMATION
  Report Type: Report from Study
  Country: US (occurrence: US)
  Receive Date: 20120327
  Receipt Date: 20160721
  Transmission Date: 20161109
  Serious: Yes (Hospitalization, Disabling, Other)
  Sender: FDA-Public Use
  Company Number: PHHY2011US34856

PATIENT
  Age: 58 Year
  Sex: Female
  Weight: 63 kg

DRUGS (11)
  1. VITAMIN D3 [Concomitant]
     Active Substance: CHOLECALCIFEROL
     Indication: PRODUCT USED FOR UNKNOWN INDICATION
     Dosage: UNK
     Route: 065
  2. COQ 10 [Concomitant]
     Active Substance: UBIDECARENONE
     Indication: PRODUCT USED FOR UNKNOWN INDICATION
     Dosage: UNK
     Route: 065
  3. GLEEVEC [Suspect]
     Active Substance: IMATINIB MESYLATE
     Dosage: 400 MG, QID
     Route: 048
  4. GLEEVEC [Suspect]
     Active Substance: IMATINIB MESYLATE
     Indication: CHRONIC MYELOID LEUKAEMIA
     Dosage: 100 MG, QD
     Route: 048
     Dates: start: 20020605
  5. GLEEVEC [Suspect]
     Active Substance: IMATINIB MESYLATE
     Dosage: 200 MG, QD
     Route: 048
  6. GLEEVEC [Suspect]
     Active Substance: IMATINIB MESYLATE
     Dosage: 100 MG, QID
     Route: 048
  7. VITAMIN B12 [Concomitant]
     Active Substance: CYANOCOBALAMIN
     Indication: PRODUCT USED FOR UNKNOWN INDICATION
     Dosage: UNK
     Route: 065
  8. GLEEVEC [Suspect]
     Active Substance: IMATINIB MESYLATE
     Dosage: 400 MG, QD
     Route: 048
  9. GRAPE SEED EXTRACT ^NATURAL FACTORS^ [Concomitant]
     Indication: PRODUCT USED FOR UNKNOWN INDICATION
     Dosage: UNK
     Route: 065
  10. FISH OIL [Concomitant]
     Active Substance: FISH OIL
     Indication: PRODUCT USED FOR UNKNOWN INDICATION
     Dosage: UNK
     Route: 065
  11. GLEEVEC [Suspect]
     Active Substance: IMATINIB MESYLATE
     Dosage: 300 MG, QD
     Route: 048

REACTIONS (46)
  - Upper-airway cough syndrome [Not Recovered/Not Resolved]
  - Hypoacusis [Not Recovered/Not Resolved]
  - Vasodilatation [Recovered/Resolved]
  - Body height decreased [Unknown]
  - Pain in extremity [Unknown]
  - Abdominal distension [Unknown]
  - Deafness [Unknown]
  - Chronic myeloid leukaemia [Unknown]
  - Photophobia [Not Recovered/Not Resolved]
  - Productive cough [Not Recovered/Not Resolved]
  - Dyspnoea [Unknown]
  - Nausea [Not Recovered/Not Resolved]
  - Muscle atrophy [Unknown]
  - Swollen tongue [Not Recovered/Not Resolved]
  - Joint stiffness [Recovering/Resolving]
  - Skin hypertrophy [Unknown]
  - Arthritis [Unknown]
  - Photosensitivity reaction [Not Recovered/Not Resolved]
  - Pancreatitis [Unknown]
  - Conjunctival hyperaemia [Unknown]
  - Tooth loss [Unknown]
  - Rash [Unknown]
  - Oedema peripheral [Recovered/Resolved]
  - Alopecia [Unknown]
  - Pain [Recovering/Resolving]
  - Malignant neoplasm progression [Unknown]
  - Insomnia [Not Recovered/Not Resolved]
  - Dreamy state [Recovered/Resolved]
  - Ear disorder [Recovered/Resolved]
  - Joint swelling [Unknown]
  - Swelling face [Unknown]
  - Pruritus [Unknown]
  - Underdose [Unknown]
  - Blood blister [Not Recovered/Not Resolved]
  - Osteoporosis [Not Recovered/Not Resolved]
  - Malaise [Unknown]
  - Swelling [Recovered/Resolved]
  - Decreased appetite [Not Recovered/Not Resolved]
  - Headache [Not Recovered/Not Resolved]
  - Vomiting [Unknown]
  - Onychogryphosis [Unknown]
  - Sinusitis [Unknown]
  - Bronchitis [Unknown]
  - Dry mouth [Unknown]
  - Headache [Recovered/Resolved]
  - Nausea [Recovered/Resolved]

NARRATIVE: CASE EVENT DATE: 20130501
